FAERS Safety Report 11346440 (Version 4)
Quarter: 2016Q1

REPORT INFORMATION
  Report Type: Spontaneous
  Country: US (occurrence: US)
  Receive Date: 20150806
  Receipt Date: 20160226
  Transmission Date: 20160525
  Serious: Yes (Hospitalization, Other)
  Sender: FDA-Public Use
  Company Number: US-BAYER-2015-394485

PATIENT
  Age: 30 Year
  Sex: Female
  Weight: 73.47 kg

DRUGS (9)
  1. MIRENA [Suspect]
     Active Substance: LEVONORGESTREL
     Indication: CONTRACEPTION
     Dosage: 20 MCG/24HR, CONT
     Route: 015
     Dates: start: 20110110, end: 20110218
  2. NORA-BE [Concomitant]
  3. PROAIR HFA [Concomitant]
     Active Substance: ALBUTEROL SULFATE
     Dosage: UNK
     Dates: start: 20101222
  4. ALAVERT ALLERGY [Concomitant]
     Active Substance: LORATADINE
     Route: 048
  5. HYDROCODONE/ACETAMINOPHEN [Concomitant]
     Active Substance: ACETAMINOPHEN\HYDROCODONE
     Indication: PAIN
  6. QVAR [Concomitant]
     Active Substance: BECLOMETHASONE DIPROPIONATE
  7. RHINOCORT AQUA [Concomitant]
     Active Substance: BUDESONIDE
  8. FLUTICASONE [Concomitant]
     Active Substance: FLUTICASONE\FLUTICASONE PROPIONATE
     Dosage: UNK
     Route: 045
     Dates: start: 20101222
  9. NEOMYCIN SULFATE/POLYMYXIN B SULFATE [Concomitant]
     Active Substance: NEOMYCIN SULFATE\POLYMYXIN B SULFATE
     Indication: OTITIS EXTERNA
     Dosage: UNK
     Dates: start: 20101222

REACTIONS (2)
  - Uterine perforation [None]
  - Device failure [None]

NARRATIVE: CASE EVENT DATE: 20110218
